FAERS Safety Report 9924038 (Version 2)
Quarter: 2014Q1

REPORT INFORMATION
  Report Type: Spontaneous
  Country: US (occurrence: US)
  Receive Date: 20140225
  Receipt Date: 20140225
  Transmission Date: 20141002
  Serious: Yes (Other)
  Sender: FDA-Public Use
  Company Number: US-GE HEALTHCARE MEDICAL DIAGNOSTICS-OSCN-PR-0806S-0429

PATIENT
  Age: 55 Year
  Sex: Female

DRUGS (10)
  1. OMNISCAN [Suspect]
     Indication: RENAL TRANSPLANT
     Dates: start: 20050111, end: 20050111
  2. OMNISCAN [Suspect]
     Indication: PAIN
  3. OMNISCAN [Suspect]
     Indication: HAEMATURIA
  4. OMNISCAN [Suspect]
     Indication: BLOOD CREATININE INCREASED
  5. GADOLINIUM (UNSPECIFIED) [Suspect]
     Indication: VENOUS STENOSIS
     Dates: start: 20041210, end: 20041210
  6. MAGNEVIST [Suspect]
     Indication: DEEP VEIN THROMBOSIS
     Dates: start: 20050416, end: 20050416
  7. COUMADIN [Concomitant]
  8. CELLCEPT [Concomitant]
  9. PROGRAF [Concomitant]
  10. PREDNISONE [Concomitant]

REACTIONS (1)
  - Nephrogenic systemic fibrosis [Not Recovered/Not Resolved]
